FAERS Safety Report 21148839 (Version 1)
Quarter: 2022Q3

REPORT INFORMATION
  Report Type: Spontaneous
  Country: US (occurrence: US)
  Receive Date: 20220729
  Receipt Date: 20220729
  Transmission Date: 20221027
  Serious: No
  Sender: FDA-Public Use
  Company Number: US-BIOVITRUM-2022US08907

PATIENT
  Age: 33 Year
  Sex: Female

DRUGS (1)
  1. KINERET [Suspect]
     Active Substance: ANAKINRA
     Indication: Pyrexia
     Dates: start: 20190513

REACTIONS (7)
  - Postural orthostatic tachycardia syndrome [Unknown]
  - Hyper IgD syndrome [Unknown]
  - Condition aggravated [Unknown]
  - Depression [Unknown]
  - Anxiety [Unknown]
  - Rib fracture [Unknown]
  - Off label use [Unknown]

NARRATIVE: CASE EVENT DATE: 20190513
